FAERS Safety Report 9213610 (Version 1)
Quarter: 2013Q2

REPORT INFORMATION
  Report Type: Spontaneous
  Country: US (occurrence: None)
  Receive Date: 20130404
  Receipt Date: 20130404
  Transmission Date: 20140414
  Serious: Yes (Other)
  Sender: FDA-Public Use
  Company Number: None

PATIENT
  Age: 52 Year
  Sex: Female
  Weight: 63.05 kg

DRUGS (1)
  1. TERBINAFINE 250 MG LAMISIL [Suspect]
     Indication: ONYCHOMYCOSIS
     Route: 048
     Dates: start: 20130328, end: 20130331

REACTIONS (5)
  - Local swelling [None]
  - Local swelling [None]
  - Hypertension [None]
  - Headache [None]
  - Nightmare [None]
